FAERS Safety Report 4955148-X (Version None)
Quarter: 2006Q1

REPORT INFORMATION
  Report Type: 
  Country: None (occurrence: None)
  Receive Date: 20060328
  Receipt Date: 20060316
  Transmission Date: 20060701
  Serious: Yes (Death, Hospitalization)
  Sender: FDA-Public Use
  Company Number: US-JNJFOC-20060203767

PATIENT
  Sex: Male

DRUGS (17)
  1. REMICADE [Suspect]
     Route: 042
  2. REMICADE [Suspect]
     Route: 042
  3. SULFASALAZINE [Suspect]
     Route: 048
  4. SULFASALAZINE [Suspect]
     Route: 048
  5. SULFASALAZINE [Suspect]
     Route: 048
  6. PREDNISONE [Concomitant]
     Route: 048
  7. PREDNISONE [Concomitant]
     Dosage: 10-60 MG DAILY
     Route: 048
  8. SOLU-MEDROL [Concomitant]
     Route: 042
  9. SOLU-MEDROL [Concomitant]
     Dosage: 40-80 MG BID
     Route: 042
  10. AZATHIOPRINE [Concomitant]
     Route: 048
  11. AZATHIOPRINE [Concomitant]
     Route: 048
  12. METRONIDAZOLE [Concomitant]
     Route: 048
  13. METRONIDAZOLE [Concomitant]
     Route: 048
  14. PROTONIX [Concomitant]
     Route: 048
  15. LASIX [Concomitant]
     Indication: HYPERTENSION
  16. HYDROCHLOROTHIAZIDE [Concomitant]
     Indication: HYPERTENSION
  17. ASPIRIN [Concomitant]
     Indication: HYPERTENSION

REACTIONS (2)
  - MULTI-ORGAN FAILURE [None]
  - TOXIC EPIDERMAL NECROLYSIS [None]
